FAERS Safety Report 22206530 (Version 1)
Quarter: 2023Q2

REPORT INFORMATION
  Report Type: Spontaneous
  Country: US (occurrence: None)
  Receive Date: 20230412
  Receipt Date: 20230412
  Transmission Date: 20230722
  Serious: No
  Sender: FDA-Public Use
  Company Number: None

PATIENT
  Age: 42 Year
  Sex: Female
  Weight: 94.5 kg

DRUGS (6)
  1. TOPIRAMATE [Suspect]
     Active Substance: TOPIRAMATE
     Indication: Migraine
     Dosage: OTHER QUANTITY : 3 TABLET(S);?FREQUENCY : AT BEDTIME;?
     Route: 048
     Dates: start: 20230114, end: 20230213
  2. SYNJARDY [Concomitant]
     Active Substance: EMPAGLIFLOZIN\METFORMIN HYDROCHLORIDE
  3. FENOFIBRATE [Concomitant]
     Active Substance: FENOFIBRATE
  4. VASCEPA [Concomitant]
     Active Substance: ICOSAPENT ETHYL
  5. Riztriptan [Concomitant]
  6. Vitamin B Super Complex [Concomitant]

REACTIONS (9)
  - Mental disorder [None]
  - Psychomotor hyperactivity [None]
  - Migraine [None]
  - Anger [None]
  - Disturbance in attention [None]
  - Depression [None]
  - Mood swings [None]
  - Crying [None]
  - Therapy cessation [None]

NARRATIVE: CASE EVENT DATE: 20230121
